FAERS Safety Report 4284214-X (Version None)
Quarter: 2004Q1

REPORT INFORMATION
  Report Type: 
  Country: None (occurrence: None)
  Receive Date: 20040130
  Receipt Date: 20040120
  Transmission Date: 20041129
  Serious: No
  Sender: FDA-Public Use
  Company Number: 04H-163-0248103-00

PATIENT
  Sex: 0

DRUGS (4)
  1. HEPARIN SODIUM [Suspect]
     Indication: THROMBOSIS PROPHYLAXIS
     Dosage: 65 UG/KG, INTRAVENOUS BOLUS; PRIOR TO PCI
     Route: 040
  2. ABCIXIMAB [Suspect]
     Indication: THROMBOSIS PROPHYLAXIS
     Dosage: SEE IMAGE; PRIOR TO PCI
     Route: 040
  3. EPTIFIBATIDE [Suspect]
     Indication: THROMBOSIS PROPHYLAXIS
     Dosage: 180 UG/KG, TWICE, INTRAVENOUS
     Route: 042
  4. ACETYLSALICYLIC ACID SRT [Concomitant]

REACTIONS (1)
  - MYOCARDIAL INFARCTION [None]
